FAERS Safety Report 4444531-7 (Version None)
Quarter: 2004Q3

REPORT INFORMATION
  Report Type: 
  Country: None (occurrence: None)
  Receive Date: 20040902
  Receipt Date: 20040825
  Transmission Date: 20050211
  Serious: Yes (Death, Life-Threatening)
  Sender: FDA-Public Use
  Company Number: HQWYE271920JUL04

PATIENT
  Age: 65 Year
  Sex: Male
  Weight: 84.3 kg

DRUGS (5)
  1. MYLOTARG [Suspect]
     Indication: ACUTE MYELOID LEUKAEMIA
     Dosage: 2 MG/M^2 1X PER 1 DAY, INTRAVENOUS
     Route: 042
     Dates: start: 20040620, end: 20040620
  2. ACYCLOVIR [Concomitant]
  3. SEPTRA [Concomitant]
  4. TACROLIMUS (TACROLIMUS) [Concomitant]
  5. MEROPENEM (MEROPENEM) [Concomitant]

REACTIONS (7)
  - ATRIAL FIBRILLATION [None]
  - CARDIAC ARREST [None]
  - HAEMODIALYSIS [None]
  - MULTI-ORGAN FAILURE [None]
  - RENAL FAILURE [None]
  - RESPIRATORY FAILURE [None]
  - VENOOCCLUSIVE LIVER DISEASE [None]
